FAERS Safety Report 14220623 (Version 1)
Quarter: 2017Q4

REPORT INFORMATION
  Report Type: Report from Study
  Country: UA (occurrence: UA)
  Receive Date: 20171124
  Receipt Date: 20171124
  Transmission Date: 20180321
  Serious: Yes (Hospitalization, Other)
  Sender: FDA-Public Use
  Company Number: UA-TAKEDA-2017MPI010591

PATIENT
  Age: 64 Year
  Sex: Female
  Weight: 93 kg

DRUGS (12)
  1. OMEPRAZOLE. [Concomitant]
     Active Substance: OMEPRAZOLE
     Indication: GASTRODUODENAL ULCER
     Dosage: UNK UNK, BID
     Route: 048
     Dates: start: 20170601
  2. DEXAMETHASONE. [Suspect]
     Active Substance: DEXAMETHASONE
     Indication: PLASMA CELL MYELOMA
     Dosage: 20 MG, UNK
     Route: 048
     Dates: start: 20170601, end: 20171006
  3. LIPRAZID [Concomitant]
     Dosage: UNK UNK, QD
     Route: 048
     Dates: start: 20170601
  4. PLACEBO [Suspect]
     Active Substance: UNSPECIFIED INGREDIENT
     Indication: PLASMA CELL MYELOMA
     Dosage: UNK, QD
     Route: 048
     Dates: start: 20170601, end: 20171008
  5. DIALIPON [Concomitant]
     Indication: TOXIC NEUROPATHY
     Dosage: 300 MG, BID
     Route: 042
     Dates: start: 20170703
  6. LIPRAZID [Concomitant]
     Indication: HYPERTENSION
     Dosage: 20 MG, QD
     Route: 048
     Dates: start: 20171009
  7. ALLOPURINOL. [Concomitant]
     Active Substance: ALLOPURINOL
     Indication: PROPHYLAXIS
     Dosage: 100 MG, TID
     Route: 048
     Dates: start: 20170601
  8. VELCADE [Suspect]
     Active Substance: BORTEZOMIB
     Indication: PLASMA CELL MYELOMA
     Dosage: 1.3 MG/M2, UNK
     Route: 058
     Dates: start: 20170601, end: 20170921
  9. ASPIRIN CARDIO [Concomitant]
     Active Substance: ASPIRIN
     Indication: THROMBOSIS PROPHYLAXIS
     Dosage: UNK UNK, QD
     Route: 048
     Dates: start: 20170601
  10. OMEPRAZOLE. [Concomitant]
     Active Substance: OMEPRAZOLE
     Indication: PROPHYLAXIS
     Dosage: UNK UNK, BID
     Route: 048
     Dates: start: 20170601
  11. VENETOCLAX. [Suspect]
     Active Substance: VENETOCLAX
     Indication: PLASMA CELL MYELOMA
     Dosage: UNK, QD
     Route: 048
     Dates: start: 20170601, end: 20171008
  12. MILGAMMA                           /01146701/ [Concomitant]
     Indication: TOXIC NEUROPATHY
     Dosage: UNK UNK, TID
     Route: 048
     Dates: start: 20170703

REACTIONS (1)
  - Cytotoxic cardiomyopathy [Recovered/Resolved]

NARRATIVE: CASE EVENT DATE: 20171009
